FAERS Safety Report 6731231-3 (Version None)
Quarter: 2010Q2

REPORT INFORMATION
  Report Type: 
  Country: None (occurrence: None)
  Receive Date: 20100517
  Receipt Date: 20100517
  Transmission Date: 20101027
  Serious: Yes (Other)
  Sender: FDA-Public Use
  Company Number: None

PATIENT
  Age: 41 Year
  Sex: Female
  Weight: 79.3795 kg

DRUGS (1)
  1. MIRENA [Suspect]

REACTIONS (10)
  - ACNE [None]
  - ALOPECIA [None]
  - ECONOMIC PROBLEM [None]
  - GINGIVAL BLEEDING [None]
  - GINGIVAL PAIN [None]
  - GINGIVAL SWELLING [None]
  - MOOD SWINGS [None]
  - PRODUCT LABEL ISSUE [None]
  - VAGINAL HAEMORRHAGE [None]
  - WEIGHT INCREASED [None]
